FAERS Safety Report 10289598 (Version 1)
Quarter: 2014Q3

REPORT INFORMATION
  Report Type: Spontaneous
  Country: CA (occurrence: CA)
  Receive Date: 20140710
  Receipt Date: 20140710
  Transmission Date: 20150326
  Serious: Yes (Hospitalization, Disabling)
  Sender: FDA-Public Use
  Company Number: CA-AMGEN INC.-CANSP2014051323

PATIENT
  Age: 56 Year
  Sex: Female

DRUGS (1)
  1. ENBREL [Suspect]
     Active Substance: ETANERCEPT
     Indication: PSORIATIC ARTHROPATHY
     Dosage: 50 MG, QWK
     Route: 058
     Dates: start: 20071231, end: 201308

REACTIONS (9)
  - Renal failure acute [Unknown]
  - Thyroid cancer [Unknown]
  - Head injury [Unknown]
  - Renal hypertrophy [Unknown]
  - Pneumonia staphylococcal [Unknown]
  - Thyroidectomy [Unknown]
  - Syncope [Unknown]
  - Nephrolithiasis [Unknown]
  - Cervical vertebral fracture [Not Recovered/Not Resolved]

NARRATIVE: CASE EVENT DATE: 20130823
